FAERS Safety Report 17499128 (Version 3)
Quarter: 2020Q3

REPORT INFORMATION
  Report Type: Report from Study
  Country: DE (occurrence: DE)
  Receive Date: 20200305
  Receipt Date: 20200704
  Transmission Date: 20201102
  Serious: Yes (Life-Threatening, Hospitalization)
  Sender: FDA-Public Use
  Company Number: DE-ROCHE-2559268

PATIENT
  Age: 4 Year
  Sex: Female
  Weight: 12 kg

DRUGS (12)
  1. METHOTREXATE. [Suspect]
     Active Substance: METHOTREXATE
     Indication: JUVENILE IDIOPATHIC ARTHRITIS
     Route: 058
     Dates: start: 20180901, end: 20190801
  2. PREDNISOLONE. [Concomitant]
     Active Substance: PREDNISOLONE
     Indication: JUVENILE IDIOPATHIC ARTHRITIS
     Route: 048
     Dates: start: 20180605
  3. AZITHROMYCIN ANHYDROUS. [Concomitant]
     Active Substance: AZITHROMYCIN ANHYDROUS
     Indication: JUVENILE IDIOPATHIC ARTHRITIS
     Route: 048
     Dates: start: 20190915
  4. BARICITINIB [Suspect]
     Active Substance: BARICITINIB
     Indication: JUVENILE IDIOPATHIC ARTHRITIS
     Dosage: 9999
     Route: 065
     Dates: start: 20200301, end: 20200301
  5. FOLIC ACID. [Concomitant]
     Active Substance: FOLIC ACID
     Indication: IRON DEFICIENCY ANAEMIA
  6. FOLIC ACID. [Concomitant]
     Active Substance: FOLIC ACID
     Indication: PROPHYLAXIS
  7. FERROSANOL [Concomitant]
     Active Substance: FERROUS GLUCONATE
     Indication: IRON DEFICIENCY ANAEMIA
     Route: 048
     Dates: start: 20190101
  8. FOLIC ACID. [Concomitant]
     Active Substance: FOLIC ACID
     Indication: JUVENILE IDIOPATHIC ARTHRITIS
  9. FOLIC ACID. [Concomitant]
     Active Substance: FOLIC ACID
     Indication: JUVENILE IDIOPATHIC ARTHRITIS
  10. ADALIMUMAB [Concomitant]
     Active Substance: ADALIMUMAB
     Route: 065
     Dates: start: 20190307, end: 20190514
  11. TOCILIZUMAB. [Suspect]
     Active Substance: TOCILIZUMAB
     Indication: JUVENILE IDIOPATHIC ARTHRITIS
     Route: 058
     Dates: start: 20190613, end: 20200226
  12. FOLIC ACID. [Concomitant]
     Active Substance: FOLIC ACID
     Indication: JUVENILE IDIOPATHIC ARTHRITIS
     Route: 048
     Dates: start: 20180901

REACTIONS (3)
  - Pneumonia cytomegaloviral [Not Recovered/Not Resolved]
  - Pleural effusion [Recovered/Resolved]
  - Pneumonia [Recovered/Resolved]

NARRATIVE: CASE EVENT DATE: 20190915
